FAERS Safety Report 14488406 (Version 2)
Quarter: 2018Q1

REPORT INFORMATION
  Report Type: Report from Study
  Country: CA (occurrence: CA)
  Receive Date: 20180205
  Receipt Date: 20180306
  Transmission Date: 20180509
  Serious: Yes (Hospitalization)
  Sender: FDA-Public Use
  Company Number: CA-TAKEDA-2018MPI001241

PATIENT
  Age: 76 Year
  Sex: Female

DRUGS (18)
  1. ATENOLOL. [Concomitant]
     Active Substance: ATENOLOL
     Dosage: 25 MG, UNK
     Route: 065
  2. ACETAMINOPHEN. [Concomitant]
     Active Substance: ACETAMINOPHEN
     Dosage: 650 MG, BID
     Route: 065
  3. ZOPICLONE [Concomitant]
     Active Substance: ZOPICLONE
     Dosage: 7.5 MG, UNK
     Route: 065
  4. COLACE [Concomitant]
     Active Substance: DOCUSATE SODIUM
     Dosage: UNK
     Route: 065
  5. ONDANSETRON [Concomitant]
     Active Substance: ONDANSETRON
     Dosage: 8 MG, BID
     Route: 065
  6. MONTELUKAST [Concomitant]
     Active Substance: MONTELUKAST SODIUM
     Dosage: UNK
     Route: 065
  7. RANITIDINE. [Concomitant]
     Active Substance: RANITIDINE
     Dosage: UNK
     Route: 065
  8. LOPERAMIDE [Concomitant]
     Active Substance: LOPERAMIDE
     Dosage: 2 MG, BID
     Route: 065
  9. FLOMAX [Concomitant]
     Active Substance: TAMSULOSIN HYDROCHLORIDE
     Dosage: UNK UNK, QD
     Route: 065
  10. IXAZOMIB [Suspect]
     Active Substance: IXAZOMIB
     Indication: PLASMA CELL MYELOMA
     Dosage: 3 MG, UNK
     Route: 048
     Dates: start: 20170623
  11. CODEINE PHOSPHATE [Concomitant]
     Active Substance: CODEINE PHOSPHATE
     Dosage: 2 MG, UNK
     Route: 065
  12. VITAMINS WITH MINERALS [Concomitant]
     Active Substance: MINERALS\VITAMINS
     Dosage: UNK UNK, QD
     Route: 065
  13. GRAVOL [Concomitant]
     Active Substance: DIMENHYDRINATE
     Dosage: UNK
     Route: 065
  14. DARATUMUMAB [Concomitant]
     Active Substance: DARATUMUMAB
     Dosage: UNK
     Route: 065
  15. MAGNESIUM CITRATE. [Concomitant]
     Active Substance: MAGNESIUM CITRATE
     Dosage: 150 MG, BID
     Route: 065
  16. VALACYCLOVIR [Concomitant]
     Active Substance: VALACYCLOVIR HYDROCHLORIDE
     Dosage: 500 MG, BID
     Route: 065
  17. VITAMIN D                          /00107901/ [Concomitant]
     Active Substance: ERGOCALCIFEROL
     Dosage: UNK UNK, BID
     Route: 065
  18. CODEINE CONTIN [Concomitant]
     Active Substance: CODEINE SULFATE
     Dosage: UNK
     Route: 065

REACTIONS (1)
  - Pain [Unknown]
